FAERS Safety Report 7551834-6 (Version None)
Quarter: 2011Q2

REPORT INFORMATION
  Report Type: 
  Country: None (occurrence: None)
  Receive Date: 20110616
  Receipt Date: 20110613
  Transmission Date: 20111010
  Serious: Yes (Other)
  Sender: FDA-Public Use
  Company Number: US-ABBOTT-11P-163-0732248-00

PATIENT
  Sex: Female
  Weight: 81.266 kg

DRUGS (1)
  1. HUMIRA [Suspect]
     Indication: RHEUMATOID ARTHRITIS
     Dates: start: 20100701, end: 20110101

REACTIONS (4)
  - HYPOTENSION [None]
  - PNEUMONIA [None]
  - CLOSTRIDIAL INFECTION [None]
  - ARTHRALGIA [None]
